FAERS Safety Report 21167067 (Version 1)
Quarter: 2022Q3

REPORT INFORMATION
  Report Type: Spontaneous
  Country: US (occurrence: US)
  Receive Date: 20220803
  Receipt Date: 20220803
  Transmission Date: 20221026
  Serious: No
  Sender: FDA-Public Use
  Company Number: US-NOVARTISTESTPH-NVSC2022US175093

PATIENT
  Sex: Female

DRUGS (1)
  1. PENICILLIN V POTASSIUM [Suspect]
     Active Substance: PENICILLIN V POTASSIUM
     Indication: Product used for unknown indication
     Dosage: UNK
     Route: 065

REACTIONS (1)
  - Drug hypersensitivity [Unknown]
